FAERS Safety Report 17464538 (Version 2)
Quarter: 2020Q4

REPORT INFORMATION
  Report Type: Other
  Country: CA (occurrence: CA)
  Receive Date: 20200226
  Receipt Date: 20201216
  Transmission Date: 20210113
  Serious: Yes (Other)
  Sender: FDA-Public Use
  Company Number: CA-APOTEX-2020AP007972

PATIENT
  Sex: Male

DRUGS (2)
  1. MORPHINE [Suspect]
     Active Substance: MORPHINE
     Indication: BACK PAIN
     Dosage: UNK
     Route: 065
  2. KETOROLAC [Suspect]
     Active Substance: KETOROLAC TROMETHAMINE
     Indication: BACK PAIN
     Dosage: UNK
     Route: 065

REACTIONS (5)
  - Dizziness postural [Recovered/Resolved]
  - Bradycardia [Recovered/Resolved]
  - Seizure [Recovered/Resolved]
  - Hypoaesthesia [Recovered/Resolved]
  - Loss of consciousness [Recovered/Resolved]
